FAERS Safety Report 10187034 (Version 2)
Quarter: 2014Q2

REPORT INFORMATION
  Report Type: Spontaneous
  Country: CA (occurrence: CA)
  Receive Date: 20140522
  Receipt Date: 20140605
  Transmission Date: 20141212
  Serious: Yes (Hospitalization, Other)
  Sender: FDA-Public Use
  Company Number: CA-JNJFOC-20140512269

PATIENT
  Age: 42 Year
  Sex: Female
  Weight: 69.4 kg

DRUGS (7)
  1. XARELTO [Suspect]
     Indication: DEEP VEIN THROMBOSIS
     Route: 048
     Dates: end: 20140201
  2. XARELTO [Suspect]
     Indication: DEEP VEIN THROMBOSIS
     Route: 048
     Dates: start: 201402
  3. XARELTO [Suspect]
     Indication: PELVIC VENOUS THROMBOSIS
     Route: 048
     Dates: start: 201402
  4. XARELTO [Suspect]
     Indication: PELVIC VENOUS THROMBOSIS
     Route: 048
     Dates: end: 20140201
  5. CELEBREX [Concomitant]
     Indication: ARTHRALGIA
     Route: 048
  6. DEXAMETHASONE [Concomitant]
     Route: 065
  7. METHOTREXATE [Concomitant]
     Indication: CROHN^S DISEASE
     Route: 058

REACTIONS (4)
  - Sternal injury [Recovered/Resolved]
  - Haematoma [Recovered/Resolved]
  - Road traffic accident [Unknown]
  - Foot fracture [Recovered/Resolved]
